FAERS Safety Report 7550219-6 (Version None)
Quarter: 2011Q2

REPORT INFORMATION
  Report Type: 
  Country: None (occurrence: None)
  Receive Date: 20110615
  Receipt Date: 20110602
  Transmission Date: 20111010
  Serious: Yes (Hospitalization)
  Sender: FDA-Public Use
  Company Number: JP-UCBSA-034483

PATIENT
  Age: 24 Month
  Sex: Female

DRUGS (3)
  1. CLOBAZAM [Concomitant]
     Route: 048
  2. KEPPRA [Suspect]
     Indication: MYOCLONIC EPILEPSY
     Route: 048
     Dates: start: 20110501
  3. VALPROATE SODIUM [Suspect]
     Route: 048
     Dates: end: 20110601

REACTIONS (1)
  - THROMBOCYTOPENIA [None]
